FAERS Safety Report 9192981 (Version 2)
Quarter: 2013Q2

REPORT INFORMATION
  Report Type: Spontaneous
  Country: AU (occurrence: AU)
  Receive Date: 20130327
  Receipt Date: 20130501
  Transmission Date: 20140414
  Serious: Yes (Hospitalization, Disabling)
  Sender: FDA-Public Use
  Company Number: AU-ASTRAZENECA-2013SE01294

PATIENT
  Age: 72 Year
  Sex: Female
  Weight: 66.1 kg

DRUGS (8)
  1. NEXIUM [Suspect]
     Route: 048
     Dates: start: 2008, end: 20130123
  2. MYCOPHENOLATE [Concomitant]
     Indication: NEUROPATHY PERIPHERAL
  3. BICOR [Concomitant]
  4. COVERSYL [Concomitant]
  5. GABAPENTIN [Concomitant]
  6. ENDEP [Concomitant]
  7. RANITIL [Concomitant]
  8. TEMAZE [Concomitant]

REACTIONS (2)
  - Neuropathy peripheral [Not Recovered/Not Resolved]
  - Gait disturbance [Not Recovered/Not Resolved]
